FAERS Safety Report 9830875 (Version 2)
Quarter: 2014Q1

REPORT INFORMATION
  Report Type: Spontaneous
  Country: US (occurrence: US)
  Receive Date: 20140120
  Receipt Date: 20140306
  Transmission Date: 20141002
  Serious: No
  Sender: FDA-Public Use
  Company Number: US-009507513-1401USA002503

PATIENT
  Age: 10 Year
  Sex: Male
  Weight: 24.94 kg

DRUGS (2)
  1. DULERA [Suspect]
     Indication: ASTHMA
     Dosage: 2 PUFFS BID
     Route: 055
     Dates: start: 201303
  2. DULERA [Suspect]
     Indication: ASTHMA

REACTIONS (4)
  - Contusion [Recovering/Resolving]
  - Polyuria [Recovered/Resolved]
  - Drug administered to patient of inappropriate age [Unknown]
  - Off label use [Unknown]
